FAERS Safety Report 7183970-0 (Version None)
Quarter: 2010Q4

REPORT INFORMATION
  Report Type: 
  Country: None (occurrence: None)
  Receive Date: 20101222
  Receipt Date: 20101216
  Transmission Date: 20110411
  Serious: Yes (Hospitalization)
  Sender: FDA-Public Use
  Company Number: US-ROCHE-749055

PATIENT
  Age: 82 Year
  Sex: Female
  Weight: 74.4 kg

DRUGS (10)
  1. NAPROXEN [Suspect]
     Indication: ARTHRITIS
     Route: 065
     Dates: start: 20080612
  2. NAPROXEN [Suspect]
     Dosage: INDICATION: PAIN FROM ARTHRITIS
     Route: 065
     Dates: start: 20080601
  3. CELEBREX [Suspect]
     Indication: ARTHRITIS
     Dosage: HARD CAPSULE
     Route: 048
     Dates: start: 20050710
  4. CELEBREX [Suspect]
     Dosage: THERAPY RESTARTED. HAD BEEN TAKING IT FOR 5 DAYS.
     Route: 048
     Dates: start: 20080701, end: 20101101
  5. PIROXICAM [Suspect]
     Indication: ARTHRITIS
     Dosage: INDICATION: PAIN FROM ARTHRITIS. HARD CAPSULE
     Route: 065
     Dates: start: 20080710
  6. DEMEROL [Suspect]
     Route: 065
  7. SYNTHROID [Concomitant]
     Indication: THYROID DISORDER
  8. VITAMIN B-12 [Concomitant]
  9. OMEPRAZOLE [Concomitant]
  10. LIPITOR [Concomitant]

REACTIONS (4)
  - APPARENT DEATH [None]
  - DRUG HYPERSENSITIVITY [None]
  - FOOT OPERATION [None]
  - KNEE ARTHROPLASTY [None]
